FAERS Safety Report 6504253-5 (Version None)
Quarter: 2009Q4

REPORT INFORMATION
  Report Type: 
  Country: None (occurrence: None)
  Receive Date: 20091217
  Receipt Date: 20090630
  Transmission Date: 20100525
  Serious: No
  Sender: FDA-Public Use
  Company Number: US-ABBOTT-09P-163-0582867-00

PATIENT
  Age: 68 Year
  Sex: Male

DRUGS (2)
  1. HYTRIN [Suspect]
     Indication: DRUG USE FOR UNKNOWN INDICATION
     Dates: start: 20090610
  2. UROXATRAL [Suspect]
     Indication: DYSURIA
     Route: 048
     Dates: start: 20090611

REACTIONS (2)
  - ASTHENIA [None]
  - DYSPNOEA [None]
